FAERS Safety Report 7617954-2 (Version None)
Quarter: 2011Q3

REPORT INFORMATION
  Report Type: 
  Country: None (occurrence: None)
  Receive Date: 20110718
  Receipt Date: 20110705
  Transmission Date: 20111222
  Serious: Yes (Other)
  Sender: FDA-Public Use
  Company Number: PHFR2011GB02500

PATIENT
  Sex: Male

DRUGS (1)
  1. CLOZAPINE [Suspect]
     Indication: SCHIZOPHRENIA
     Route: 048
     Dates: start: 20061204

REACTIONS (3)
  - NEUTROPHIL COUNT DECREASED [None]
  - BLOOD TEST ABNORMAL [None]
  - URINARY TRACT INFECTION [None]
